FAERS Safety Report 19077555 (Version 2)
Quarter: 2021Q2

REPORT INFORMATION
  Report Type: Spontaneous
  Country: IN (occurrence: IN)
  Receive Date: 20210331
  Receipt Date: 20210406
  Transmission Date: 20210717
  Serious: Yes (Other)
  Sender: FDA-Public Use
  Company Number: IN-PFIZER INC-2014213398

PATIENT
  Age: 57 Year
  Sex: Male

DRUGS (5)
  1. METHOTREXATE SODIUM. [Suspect]
     Active Substance: METHOTREXATE SODIUM
     Dosage: 7.5 MG, DAILY
  2. METHOTREXATE SODIUM. [Suspect]
     Active Substance: METHOTREXATE SODIUM
     Indication: PSORIASIS
     Dosage: 10 MG, WEEKLY
  3. LEUCOVORIN CALCIUM. [Concomitant]
     Active Substance: LEUCOVORIN CALCIUM
     Dosage: 25 MG( EVERY 6 HOURS ON DAY 1)
     Route: 042
  4. LEUCOVORIN CALCIUM. [Concomitant]
     Active Substance: LEUCOVORIN CALCIUM
     Dosage: (, FOLLOWED BY 10 MG EVERY 6 HOURS ON DAY 2 AND 3)UNK
  5. FILGRASTIM [Concomitant]
     Active Substance: FILGRASTIM
     Indication: PSORIASIS
     Dosage: 5 UG/KG, DAILY
     Route: 058

REACTIONS (5)
  - Intentional product misuse [Unknown]
  - Myelosuppression [Recovered/Resolved]
  - Psoriasis [Recovered/Resolved]
  - Ulcer [Recovered/Resolved]
  - Toxicity to various agents [Recovered/Resolved]
